FAERS Safety Report 6074193-7 (Version None)
Quarter: 2009Q1

REPORT INFORMATION
  Report Type: 
  Country: None (occurrence: None)
  Receive Date: 20090211
  Receipt Date: 20090202
  Transmission Date: 20090719
  Serious: Yes (Hospitalization)
  Sender: FDA-Public Use
  Company Number: GB-ALLERGAN-0901260US

PATIENT
  Sex: Female

DRUGS (1)
  1. DYSPORT [Suspect]
     Indication: DYSTONIA

REACTIONS (1)
  - PNEUMONIA ASPIRATION [None]
